FAERS Safety Report 12171654 (Version 1)
Quarter: 2016Q1

REPORT INFORMATION
  Report Type: Spontaneous
  Country: US (occurrence: None)
  Receive Date: 20160310
  Receipt Date: 20160310
  Transmission Date: 20160526
  Serious: No
  Sender: FDA-Public Use
  Company Number: None

PATIENT
  Age: 58 Year
  Sex: Male
  Weight: 110.9 kg

DRUGS (1)
  1. LISINOPRIL. [Suspect]
     Active Substance: LISINOPRIL
     Indication: HYPERTENSION
     Route: 048
     Dates: start: 20121204, end: 20130710

REACTIONS (4)
  - Swelling [None]
  - Dysphagia [None]
  - Angioedema [None]
  - Oropharyngeal pain [None]

NARRATIVE: CASE EVENT DATE: 20130710
